FAERS Safety Report 15940664 (Version 1)
Quarter: 2019Q1

REPORT INFORMATION
  Report Type: Spontaneous
  Country: US (occurrence: US)
  Receive Date: 20190208
  Receipt Date: 20190208
  Transmission Date: 20190417
  Serious: No
  Sender: FDA-Public Use
  Company Number: US-009507513-1902USA002516

PATIENT
  Age: 44 Year
  Sex: Female
  Weight: 104.32 kg

DRUGS (9)
  1. NUVARING [Suspect]
     Active Substance: ETHINYL ESTRADIOL\ETONOGESTREL
     Dosage: 1 RING
     Route: 067
     Dates: start: 20190124
  2. CELEXA [Concomitant]
     Active Substance: CITALOPRAM HYDROBROMIDE
  3. CRESTOR [Concomitant]
     Active Substance: ROSUVASTATIN CALCIUM
  4. VITAMINS (UNSPECIFIED) [Concomitant]
     Active Substance: VITAMINS
  5. NUVARING [Suspect]
     Active Substance: ETHINYL ESTRADIOL\ETONOGESTREL
     Indication: CONTRACEPTION
     Dosage: 1 RING
     Route: 067
     Dates: start: 2019
  6. NUVARING [Suspect]
     Active Substance: ETHINYL ESTRADIOL\ETONOGESTREL
     Dosage: 1 RING
     Route: 067
     Dates: start: 201705
  7. XANAX [Concomitant]
     Active Substance: ALPRAZOLAM
  8. ASCORBIC ACID. [Concomitant]
     Active Substance: ASCORBIC ACID
  9. IRON (UNSPECIFIED) [Concomitant]
     Active Substance: IRON

REACTIONS (3)
  - Product prescribing error [Unknown]
  - Abnormal withdrawal bleeding [Not Recovered/Not Resolved]
  - Incorrect product administration duration [Unknown]

NARRATIVE: CASE EVENT DATE: 2019
